FAERS Safety Report 11780173 (Version 1)
Quarter: 2015Q4

REPORT INFORMATION
  Report Type: Spontaneous
  Country: US (occurrence: US)
  Receive Date: 20151126
  Receipt Date: 20151126
  Transmission Date: 20160305
  Serious: No
  Sender: FDA-Public Use
  Company Number: US-JNJFOC-20150927200

PATIENT
  Age: 2 Month
  Sex: Male
  Weight: 5.9 kg

DRUGS (2)
  1. INFANTS TYLENOL [Suspect]
     Active Substance: ACETAMINOPHEN
     Route: 048
  2. INFANTS TYLENOL [Suspect]
     Active Substance: ACETAMINOPHEN
     Indication: INJECTION SITE PAIN
     Dosage: TWICE, EVERY 6 HOURS
     Route: 048
     Dates: start: 20150923, end: 20150923

REACTIONS (1)
  - Product contamination [Unknown]
